FAERS Safety Report 10563645 (Version 1)
Quarter: 2014Q4

REPORT INFORMATION
  Report Type: Report from Study
  Country: CA (occurrence: CA)
  Receive Date: 20141104
  Receipt Date: 20141104
  Transmission Date: 20150529
  Serious: Yes (Other)
  Sender: FDA-Public Use
  Company Number: CA-BRISTOL-MYERS SQUIBB COMPANY-21538616

PATIENT
  Age: 64 Year
  Sex: Female

DRUGS (3)
  1. ABATACEPT SUBQ INJECTION 125MG/ML [Suspect]
     Active Substance: ABATACEPT
     Indication: RHEUMATOID ARTHRITIS
     Dosage: INTRAVENOUS 1000MG, RESTARTED ON 06OCT14
     Route: 058
     Dates: start: 20140626
  2. CELECOXIB. [Concomitant]
     Active Substance: CELECOXIB
  3. COVERSYL [Concomitant]
     Active Substance: PERINDOPRIL

REACTIONS (2)
  - Foot deformity [Unknown]
  - Skin exfoliation [Unknown]
